FAERS Safety Report 8780717 (Version 1)
Quarter: 2012Q4

REPORT INFORMATION
  Report Type: 
  Country: CN (occurrence: CN)
  Receive Date: 20120913
  Receipt Date: 20120913
  Transmission Date: 20130627
  Serious: Yes (Other)
  Sender: FDA-Public Use
  Company Number: CN-ASTRAZENECA-2012SE65678

PATIENT
  Age: 26543 Day
  Sex: Female
  Weight: 67 kg

DRUGS (2)
  1. METOPROLOL TARTRATE [Suspect]
     Route: 048
  2. METOPROLOL SUCCINATE [Suspect]
     Indication: HYPERTENSION
     Route: 048
     Dates: start: 20111209, end: 20111209

REACTIONS (3)
  - Bradycardia [Recovered/Resolved]
  - Atrioventricular block [Recovered/Resolved]
  - Supraventricular extrasystoles [Recovered/Resolved]
